FAERS Safety Report 15249447 (Version 1)
Quarter: 2018Q3

REPORT INFORMATION
  Report Type: Spontaneous
  Country: US (occurrence: US)
  Receive Date: 20180807
  Receipt Date: 20180807
  Transmission Date: 20181010
  Serious: No
  Sender: FDA-Public Use
  Company Number: US-ENDO PHARMACEUTICALS INC-2018-016438

PATIENT
  Sex: Female
  Weight: 104.3 kg

DRUGS (4)
  1. PREDNISONE TABLETS 5MG [Suspect]
     Active Substance: PREDNISONE
     Indication: RHEUMATOID ARTHRITIS
     Dosage: 5 MG, DAILY
     Route: 065
     Dates: start: 2017
  2. PREDNISONE TABLETS 5MG [Suspect]
     Active Substance: PREDNISONE
     Dosage: 5 MG, TID
     Route: 065
     Dates: start: 2017
  3. LEFLUNOMIDE WINTHROP [Suspect]
     Active Substance: LEFLUNOMIDE
     Indication: RHEUMATOID ARTHRITIS
     Dosage: UNK UNK, UNKNOWN
     Route: 065
     Dates: start: 2017
  4. PREDNISONE TABLETS 5MG [Suspect]
     Active Substance: PREDNISONE
     Dosage: 5 MG, BID
     Route: 065
     Dates: start: 2017

REACTIONS (1)
  - Drug ineffective [Not Recovered/Not Resolved]

NARRATIVE: CASE EVENT DATE: 2017
